FAERS Safety Report 25678289 (Version 1)
Quarter: 2025Q3

REPORT INFORMATION
  Report Type: Spontaneous
  Country: EU (occurrence: EU)
  Receive Date: 20250813
  Receipt Date: 20250813
  Transmission Date: 20251021
  Serious: Yes (Hospitalization, Other)
  Sender: ANI
  Company Number: EU-ANIPHARMA-2025-DE-000054

PATIENT
  Age: 75 Year
  Sex: Female

DRUGS (2)
  1. ANASTROZOLE [Suspect]
     Active Substance: ANASTROZOLE
     Indication: Breast cancer female
     Route: 048
     Dates: start: 20240823
  2. PALBOCICLIB [Suspect]
     Active Substance: PALBOCICLIB
     Dates: start: 20240824, end: 20250321

REACTIONS (2)
  - Second primary malignancy [Recovered/Resolved]
  - Ovarian neoplasm [Recovered/Resolved]

NARRATIVE: CASE EVENT DATE: 20250523
